FAERS Safety Report 6399583-4 (Version None)
Quarter: 2009Q4

REPORT INFORMATION
  Report Type: 
  Country: None (occurrence: None)
  Receive Date: 20091014
  Receipt Date: 20091006
  Transmission Date: 20100525
  Serious: Yes (Hospitalization, Other)
  Sender: FDA-Public Use
  Company Number: DE-AVENTIS-200912371DE

PATIENT
  Age: 57 Year
  Sex: Female

DRUGS (3)
  1. DOCETAXEL [Suspect]
     Dates: start: 20090529, end: 20090529
  2. EPIRUBICIN [Suspect]
     Dates: start: 20090529, end: 20090529
  3. CYCLOPHOSPHAMIDE [Suspect]
     Dates: start: 20090529, end: 20090529

REACTIONS (7)
  - ACUTE PRERENAL FAILURE [None]
  - ANAEMIA [None]
  - GASTROENTERITIS CLOSTRIDIAL [None]
  - HYPOCALCAEMIA [None]
  - HYPOKALAEMIA [None]
  - LEUKOPENIA [None]
  - RENAL FAILURE [None]
